FAERS Safety Report 4667011-2 (Version None)
Quarter: 2005Q2

REPORT INFORMATION
  Report Type: 
  Country: None (occurrence: None)
  Receive Date: 20050520
  Receipt Date: 20040426
  Transmission Date: 20051028
  Serious: Yes (Other)
  Sender: FDA-Public Use
  Company Number: PHEH2004US04636

PATIENT
  Age: 67 Year
  Sex: Male

DRUGS (1)
  1. AREDIA [Suspect]
     Indication: MULTIPLE MYELOMA
     Dosage: 90 MG, QMO
     Dates: start: 19990707

REACTIONS (5)
  - ASEPTIC NECROSIS BONE [None]
  - BONE FORMATION INCREASED [None]
  - ORAL SOFT TISSUE DISORDER [None]
  - ORAL SURGERY [None]
  - SOFT TISSUE INFLAMMATION [None]
